FAERS Safety Report 5170804-9 (Version None)
Quarter: 2006Q4

REPORT INFORMATION
  Report Type: 
  Country: None (occurrence: None)
  Receive Date: 20061205
  Receipt Date: 20061205
  Transmission Date: 20070319
  Serious: No
  Sender: FDA-Public Use
  Company Number: None

PATIENT
  Age: 64 Year
  Sex: Male
  Weight: 103.4201 kg

DRUGS (1)
  1. LISINOPRIL AND HYDROCHLOROTHIAZIDE [Suspect]
     Indication: HYPERTENSION
     Dosage: 1 TABLET A DAY PO
     Route: 048
     Dates: start: 20061103, end: 20061203

REACTIONS (3)
  - EAR INFECTION [None]
  - PALPITATIONS [None]
  - SWELLING FACE [None]
